FAERS Safety Report 17670971 (Version 4)
Quarter: 2020Q3

REPORT INFORMATION
  Report Type: Report from Study
  Country: US (occurrence: US)
  Receive Date: 20200415
  Receipt Date: 20200804
  Transmission Date: 20201102
  Serious: No
  Sender: FDA-Public Use
  Company Number: US-BIOVITRUM-2020US0120

PATIENT
  Age: 31 Year
  Sex: Female

DRUGS (2)
  1. KINERET [Suspect]
     Active Substance: ANAKINRA
     Indication: ARTHRITIS BACTERIAL
     Route: 058
     Dates: start: 20190401
  2. KINERET [Suspect]
     Active Substance: ANAKINRA
     Route: 058
     Dates: start: 20190326

REACTIONS (5)
  - Off label use [Not Recovered/Not Resolved]
  - Injection site bruising [Unknown]
  - Hypercholesterolaemia [Unknown]
  - Injection site erythema [Unknown]
  - Product dose omission issue [Unknown]

NARRATIVE: CASE EVENT DATE: 20190326
